FAERS Safety Report 8967624 (Version 1)
Quarter: 2012Q4

REPORT INFORMATION
  Report Type: 
  Country: US (occurrence: US)
  Receive Date: 20121217
  Receipt Date: 20121217
  Transmission Date: 20130627
  Serious: No
  Sender: FDA-Public Use
  Company Number: US-009507513-1212USA003774

PATIENT
  Age: 50 Year
  Sex: Male
  Weight: 70.3 kg

DRUGS (8)
  1. PEGINTRON [Suspect]
     Indication: HEPATITIS C
     Dosage: 0.4 ml, qw, 120 microgram/0.5 ml
     Route: 058
  2. RIBAPAK [Suspect]
     Indication: HEPATITIS C
     Dosage: 1000, qd
  3. ACETAMINOPHEN (+) HYDROCODONE BITARTRATE [Concomitant]
     Dosage: 10-325 MG
  4. GABAPENTIN [Concomitant]
     Dosage: 300 mg, UNK
  5. IBUPROFEN [Concomitant]
     Dosage: 800 mg, UNK
  6. CYANOCOBALAMIN [Concomitant]
     Dosage: 1000 microgram
  7. VITAMIN D (UNSPECIFIED) [Concomitant]
     Dosage: 1000 units
  8. VITAMINS (UNSPECIFIED) [Concomitant]

REACTIONS (2)
  - Influenza like illness [Unknown]
  - Fatigue [Unknown]
